FAERS Safety Report 11320462 (Version 1)
Quarter: 2015Q3

REPORT INFORMATION
  Report Type: Spontaneous
  Country: US (occurrence: None)
  Receive Date: 20150728
  Receipt Date: 20150728
  Transmission Date: 20151125
  Serious: Yes (Other)
  Sender: FDA-Public Use
  Company Number: None

PATIENT
  Age: 13 Year
  Sex: Male

DRUGS (2)
  1. WELLBUTRIN GENERIC [Suspect]
     Active Substance: BUPROPION HYDROCHLORIDE
  2. ABILIFY GENERIC [Suspect]
     Active Substance: ARIPIPRAZOLE

REACTIONS (4)
  - Affect lability [None]
  - Sleep disorder [None]
  - Social problem [None]
  - Product substitution issue [None]

NARRATIVE: CASE EVENT DATE: 20150626
